FAERS Safety Report 4653841-X (Version None)
Quarter: 2005Q2

REPORT INFORMATION
  Report Type: 
  Country: None (occurrence: None)
  Receive Date: 20050404
  Receipt Date: 20050117
  Transmission Date: 20051028
  Serious: No
  Sender: FDA-Public Use
  Company Number: USA050188551

PATIENT
  Age: 86 Year
  Sex: Female

DRUGS (13)
  1. CYMBALTA [Suspect]
     Indication: DEPRESSION
     Dosage: 60 MG DAY
     Dates: start: 20041115
  2. LORAZEPAM [Concomitant]
  3. AMLODIPINE BESYLATE W/ BENAZEPRIL HYDROCHLOR. [Concomitant]
  4. OXYCONTIN [Concomitant]
  5. ACETAMINOPHEN AND OXYCODONE HCL [Concomitant]
  6. GABAPENTIN [Concomitant]
  7. AMBIEN [Concomitant]
  8. PRAVACHOL [Concomitant]
  9. IRON SUPPLEMENT [Concomitant]
  10. MIRALAX [Concomitant]
  11. OMEPRAZOLE [Concomitant]
  12. SYNTHROID [Concomitant]
  13. ASPIRIN [Concomitant]

REACTIONS (1)
  - FALL [None]
